FAERS Safety Report 11203040 (Version 1)
Quarter: 2015Q2

REPORT INFORMATION
  Report Type: Report from Study
  Country: FR (occurrence: FR)
  Receive Date: 20150619
  Receipt Date: 20150619
  Transmission Date: 20150821
  Serious: Yes (Hospitalization)
  Sender: FDA-Public Use
  Company Number: FR-GLAXOSMITHKLINE-FR2015GSK085337

PATIENT
  Age: 63 Year

DRUGS (6)
  1. OMEGA-3-ACID ETHYL ESTERS. [Suspect]
     Active Substance: OMEGA-3-ACID ETHYL ESTERS
     Indication: ISCHAEMIC HEART DISEASE PROPHYLAXIS
     Dosage: UNK
     Dates: start: 20070117, end: 20130109
  2. PRAVADUAL [Concomitant]
     Active Substance: ASPIRIN\PRAVASTATIN
  3. PLAVIX [Concomitant]
     Active Substance: CLOPIDOGREL BISULFATE
  4. COVERSYL [Concomitant]
     Active Substance: PERINDOPRIL
  5. EZETROL [Concomitant]
     Active Substance: EZETIMIBE
  6. TENORMIN [Concomitant]
     Active Substance: ATENOLOL

REACTIONS (2)
  - Dyspnoea exertional [Unknown]
  - Arteriogram coronary [Unknown]

NARRATIVE: CASE EVENT DATE: 20120614
